FAERS Safety Report 8257070-2 (Version None)
Quarter: 2012Q1

REPORT INFORMATION
  Report Type: 
  Country: None (occurrence: None)
  Receive Date: 20120330
  Receipt Date: 20120319
  Transmission Date: 20120608
  Serious: Yes (Other)
  Sender: FDA-Public Use
  Company Number: JP-2011-11767

PATIENT
  Age: 64 Year
  Sex: Female
  Weight: 47 kg

DRUGS (8)
  1. PLETAL [Suspect]
     Indication: PERIPHERAL ARTERIAL OCCLUSIVE DISEASE
     Dosage: 100 MG MILLIGRAM(S), BID, ORAL
     Route: 048
     Dates: start: 20110927, end: 20111004
  2. PLETAL [Suspect]
     Indication: PERIPHERAL ARTERIAL OCCLUSIVE DISEASE
     Dosage: 100 MG MILLIGRAM(S), BID, ORAL
     Route: 048
     Dates: start: 20111116
  3. CRESTOR [Concomitant]
  4. CONIEL (BENIDIPINE HYDROCHLORIDE) [Concomitant]
  5. OMEPRAZL (OMEPRAZOLE) [Concomitant]
  6. CELECOXIB [Concomitant]
  7. METGLUCO (METFORMIN HYDROCHLORIDE) [Concomitant]
  8. IRBETAN (IRBESARTAN) [Concomitant]

REACTIONS (4)
  - LEFT VENTRICLE OUTFLOW TRACT OBSTRUCTION [None]
  - PALPITATIONS [None]
  - MALAISE [None]
  - CHEST DISCOMFORT [None]
